FAERS Safety Report 11026522 (Version 2)
Quarter: 2015Q2

REPORT INFORMATION
  Report Type: Spontaneous
  Country: US (occurrence: US)
  Receive Date: 20150414
  Receipt Date: 20150603
  Transmission Date: 20150821
  Serious: No
  Sender: FDA-Public Use
  Company Number: US-PFIZER INC-2015117611

PATIENT
  Age: 46 Year
  Sex: Female
  Weight: 83 kg

DRUGS (1)
  1. CYTOMEL [Suspect]
     Active Substance: LIOTHYRONINE SODIUM
     Indication: GENERALISED RESISTANCE TO THYROID HORMONE
     Dosage: LITTLE MORE THAN 450MCG A DAY
     Dates: start: 2011

REACTIONS (1)
  - Weight increased [Unknown]
